FAERS Safety Report 24588145 (Version 1)
Quarter: 2024Q4

REPORT INFORMATION
  Report Type: Spontaneous
  Country: US (occurrence: None)
  Receive Date: 20241106
  Receipt Date: 20241106
  Transmission Date: 20250114
  Serious: Yes (Hospitalization)
  Sender: Public
  Company Number: None

PATIENT
  Age: 75 Year
  Sex: Male

DRUGS (4)
  1. RIFAMPIN [Suspect]
     Active Substance: RIFAMPIN
     Indication: Tuberculosis
  2. ISONIAZID [Suspect]
     Active Substance: ISONIAZID
  3. PYRAZINAMIDE [Suspect]
     Active Substance: PYRAZINAMIDE
  4. ETHAMBUTOL [Suspect]
     Active Substance: ETHAMBUTOL HYDROCHLORIDE

REACTIONS (4)
  - Dysgeusia [None]
  - Liver function test increased [None]
  - Vomiting [None]
  - Drug-induced liver injury [None]

NARRATIVE: CASE EVENT DATE: 20240822
